FAERS Safety Report 7572275-1 (Version None)
Quarter: 2011Q2

REPORT INFORMATION
  Report Type: 
  Country: None (occurrence: None)
  Receive Date: 20110624
  Receipt Date: 20110616
  Transmission Date: 20111010
  Serious: Yes (Hospitalization)
  Sender: FDA-Public Use
  Company Number: PHHO2009JP10973

PATIENT
  Sex: Female
  Weight: 43 kg

DRUGS (14)
  1. NORVASC [Concomitant]
     Indication: HYPERTENSION
     Dosage: UNK
     Dates: start: 20090723, end: 20101222
  2. CINAL [Concomitant]
  3. SIMULECT [Suspect]
     Indication: RENAL TRANSPLANT
     Dosage: 20 MG, ONCE/SINGLE
     Route: 042
     Dates: start: 20090605, end: 20090605
  4. PREDNISOLONE [Suspect]
     Dosage: 5 MG, DAILY
     Route: 048
  5. PREDNISOLONE [Suspect]
     Dosage: 10 MG, DAILY
     Route: 048
     Dates: start: 20101220
  6. LANSOPRAZOLE [Concomitant]
  7. NEORAL [Suspect]
     Dosage: 100 MG, DAILY
     Route: 048
     Dates: start: 20101025
  8. SULFAMETHOXAZOLE [Concomitant]
  9. LOCHOLEST [Concomitant]
  10. NEORAL [Suspect]
     Indication: RENAL TRANSPLANT
     Dosage: 120 MG, DAILY
     Route: 048
     Dates: start: 20090603
  11. SIMULECT [Suspect]
     Dosage: 20 MG, ONCE/SINGLE
     Route: 042
     Dates: start: 20090606, end: 20090606
  12. PREDNISOLONE [Suspect]
     Indication: RENAL TRANSPLANT
     Dosage: 10 MG, DAILY
     Route: 048
     Dates: start: 20090605
  13. EVEROLIMUS [Suspect]
     Indication: RENAL TRANSPLANT
     Dosage: UNK
     Route: 048
     Dates: start: 20090606, end: 20090904
  14. FERROUS CITRATE [Concomitant]

REACTIONS (5)
  - PYREXIA [None]
  - RENAL CYST INFECTION [None]
  - NEPHROSCLEROSIS [None]
  - BACK PAIN [None]
  - PROTEINURIA [None]
